FAERS Safety Report 13255244 (Version 1)
Quarter: 2017Q1

REPORT INFORMATION
  Report Type: Spontaneous
  Country: US (occurrence: US)
  Receive Date: 20170217
  Receipt Date: 20170217
  Transmission Date: 20170428
  Serious: No
  Sender: FDA-Public Use
  Company Number: None

PATIENT
  Age: 51 Year
  Sex: Female

DRUGS (1)
  1. BOTOX [Suspect]
     Active Substance: ONABOTULINUMTOXINA
     Indication: PRODUCT USED FOR UNKNOWN INDICATION
     Dosage: 200UNITS EVERY 3 MONTHS IM
     Route: 030
     Dates: start: 20160820, end: 20161220

REACTIONS (3)
  - Injection site reaction [None]
  - Eye disorder [None]
  - Headache [None]

NARRATIVE: CASE EVENT DATE: 20161220
